FAERS Safety Report 18285270 (Version 4)
Quarter: 2021Q1

REPORT INFORMATION
  Report Type: Report from Study
  Country: US (occurrence: US)
  Receive Date: 20200918
  Receipt Date: 20210208
  Transmission Date: 20210419
  Serious: No
  Sender: FDA-Public Use
  Company Number: NVSC2020US255632

PATIENT
  Sex: Female

DRUGS (2)
  1. COSENTYX [Suspect]
     Active Substance: SECUKINUMAB
     Dosage: 150 MG, Q3W
     Route: 058
  2. COSENTYX [Suspect]
     Active Substance: SECUKINUMAB
     Indication: RHEUMATOID ARTHRITIS
     Dosage: 150 MG, Q4W
     Route: 058

REACTIONS (5)
  - Psoriasis [Unknown]
  - Therapeutic response shortened [Unknown]
  - Rash macular [Unknown]
  - Product use in unapproved indication [Unknown]
  - Arthralgia [Unknown]
